FAERS Safety Report 7824247-7 (Version None)
Quarter: 2011Q4

REPORT INFORMATION
  Report Type: 
  Country: None (occurrence: None)
  Receive Date: 20111019
  Receipt Date: 20111014
  Transmission Date: 20120403
  Serious: Yes (Hospitalization, Disabling, Other)
  Sender: FDA-Public Use
  Company Number: US-PFIZER INC-2011132455

PATIENT
  Sex: Female

DRUGS (7)
  1. SEROQUEL [Concomitant]
     Indication: INSOMNIA
     Dosage: UNK
     Dates: start: 20070101, end: 20100101
  2. CHANTIX [Suspect]
     Indication: SMOKING CESSATION THERAPY
     Dosage: STARTER PACK AND CONTINUING MONTH PACK
     Dates: start: 20071017, end: 20080717
  3. NICODERM [Concomitant]
     Indication: SMOKING CESSATION THERAPY
     Dosage: UNK
     Dates: start: 20040101, end: 20110101
  4. SEROQUEL [Concomitant]
     Indication: BIPOLAR DISORDER
  5. CALCIUM CARBONATE [Concomitant]
     Indication: MEDICAL DIET
     Dosage: UNK
     Dates: start: 20070101
  6. WELLBUTRIN [Concomitant]
     Indication: ANXIETY
     Dosage: UNK
     Dates: start: 20070101, end: 20100101
  7. WELLBUTRIN [Concomitant]
     Indication: DEPRESSION

REACTIONS (13)
  - PANIC ATTACK [None]
  - ANXIETY [None]
  - COGNITIVE DISORDER [None]
  - CHEST DISCOMFORT [None]
  - BIPOLAR DISORDER [None]
  - PSYCHOTIC BEHAVIOUR [None]
  - CONFUSIONAL STATE [None]
  - IMPAIRED DRIVING ABILITY [None]
  - DISTURBANCE IN ATTENTION [None]
  - INSOMNIA [None]
  - DEPRESSION [None]
  - PARANOIA [None]
  - HYPERVENTILATION [None]
